FAERS Safety Report 7791726-0 (Version None)
Quarter: 2011Q4

REPORT INFORMATION
  Report Type: 
  Country: None (occurrence: None)
  Receive Date: 20111003
  Receipt Date: 20110922
  Transmission Date: 20120403
  Serious: Yes (Disabling, Other)
  Sender: FDA-Public Use
  Company Number: US-JNJFOC-20110909418

PATIENT
  Age: 54 Year
  Sex: Male

DRUGS (2)
  1. DOXORUBICIN HCL [Suspect]
     Indication: KAPOSI'S SARCOMA
     Route: 042
  2. DOXORUBICIN HCL [Suspect]
     Route: 042

REACTIONS (1)
  - CANCER PAIN [None]
